FAERS Safety Report 13754317 (Version 3)
Quarter: 2017Q4

REPORT INFORMATION
  Report Type: Spontaneous
  Country: US (occurrence: US)
  Receive Date: 20170714
  Receipt Date: 20171013
  Transmission Date: 20180320
  Serious: Yes (Hospitalization, Other)
  Sender: FDA-Public Use
  Company Number: US-INCYTE CORPORATION-2017IN005447

PATIENT

DRUGS (4)
  1. ACYCLOVIR                          /00587301/ [Concomitant]
     Active Substance: ACYCLOVIR
     Indication: PROPHYLAXIS
  2. PNEUMOCOCCAL VACCINE POLYVALENT [Concomitant]
     Active Substance: PNEUMOCOCCAL VACCINE POLYVALENT
     Indication: PRODUCT USED FOR UNKNOWN INDICATION
  3. JAKAFI [Suspect]
     Active Substance: RUXOLITINIB
     Indication: MYELOFIBROSIS
     Dosage: 5 MG, BID
     Route: 048
     Dates: start: 201705, end: 20170916
  4. PROTONIX                           /00661201/ [Concomitant]
     Active Substance: OMEPRAZOLE
     Indication: PRODUCT USED FOR UNKNOWN INDICATION

REACTIONS (10)
  - Hepatomegaly [Unknown]
  - Platelet count decreased [Unknown]
  - Pain [Unknown]
  - Melanocytic naevus [Unknown]
  - Anaemia [Unknown]
  - Deep vein thrombosis [Unknown]
  - Drug dose omission [Unknown]
  - Chondrocalcinosis pyrophosphate [Unknown]
  - Thrombocytopenia [Unknown]
  - Splenomegaly [Unknown]

NARRATIVE: CASE EVENT DATE: 201705
